FAERS Safety Report 5280189-5 (Version None)
Quarter: 2007Q1

REPORT INFORMATION
  Report Type: 
  Country: None (occurrence: None)
  Receive Date: 20070326
  Receipt Date: 20070326
  Transmission Date: 20070707
  Serious: Yes (Other)
  Sender: FDA-Public Use
  Company Number: None

PATIENT
  Sex: Female
  Weight: 63.5036 kg

DRUGS (2)
  1. ARIMIDEX [Suspect]
     Indication: BREAST CANCER
     Dosage: 1 MG TABLET 1 X DAY PO
     Route: 048
     Dates: start: 20060504, end: 20070310
  2. ARIMIDEX [Suspect]
     Indication: PROPHYLAXIS
     Dosage: 1 MG TABLET 1 X DAY PO
     Route: 048
     Dates: start: 20060504, end: 20070310

REACTIONS (4)
  - CONFUSIONAL STATE [None]
  - DEPRESSION [None]
  - INSOMNIA [None]
  - MYALGIA [None]
